FAERS Safety Report 25563090 (Version 1)
Quarter: 2025Q3

REPORT INFORMATION
  Report Type: Spontaneous
  Country: EU (occurrence: EU)
  Receive Date: 20250716
  Receipt Date: 20250716
  Transmission Date: 20251021
  Serious: Yes (Other)
  Sender: BAXTER
  Company Number: None

PATIENT
  Sex: Male

DRUGS (4)
  1. DEXTROSE [Interacting]
     Active Substance: DEXTROSE MONOHYDRATE
     Route: 042
     Dates: start: 202505, end: 202505
  2. NOREPINEPHRINE BITARTRATE [Interacting]
     Active Substance: NOREPINEPHRINE BITARTRATE
     Route: 042
     Dates: start: 202505, end: 202505
  3. ARGIPRESSIN [Interacting]
     Active Substance: ARGIPRESSIN
     Route: 042
     Dates: start: 202505, end: 202505
  4. POTASSIUM BICARBONATE [Interacting]
     Active Substance: POTASSIUM BICARBONATE
     Route: 042
     Dates: start: 202505, end: 202505

REACTIONS (1)
  - Infusion site oedema [Unknown]
